FAERS Safety Report 10236769 (Version 2)
Quarter: 2014Q2

REPORT INFORMATION
  Report Type: Report from Study
  Country: DE (occurrence: DE)
  Receive Date: 20140613
  Receipt Date: 20140613
  Transmission Date: 20141212
  Serious: Yes (Disabling)
  Sender: FDA-Public Use
  Company Number: DE-US-EMD SERONO, INC.-7294789

PATIENT
  Sex: Female

DRUGS (3)
  1. REBIF [Suspect]
     Indication: MULTIPLE SCLEROSIS
     Route: 058
     Dates: start: 20090928
  2. ZOPICLON [Concomitant]
     Indication: DEPRESSION
     Route: 048
     Dates: start: 20090526
  3. BUPROPION [Concomitant]
     Indication: DEPRESSION
     Route: 048
     Dates: start: 20100819

REACTIONS (3)
  - Bone atrophy [Not Recovered/Not Resolved]
  - Stomatitis [Not Recovered/Not Resolved]
  - Procedural complication [Not Recovered/Not Resolved]
